FAERS Safety Report 6687012-2 (Version None)
Quarter: 2010Q2

REPORT INFORMATION
  Report Type: 
  Country: None (occurrence: None)
  Receive Date: 20100419
  Receipt Date: 20100414
  Transmission Date: 20101027
  Serious: Yes (Other)
  Sender: FDA-Public Use
  Company Number: US-CEPHALON-2010001890

PATIENT
  Sex: Male
  Weight: 99 kg

DRUGS (7)
  1. TREANDA [Suspect]
     Indication: CHRONIC LYMPHOCYTIC LEUKAEMIA
     Dates: start: 20100215, end: 20100322
  2. TREANDA [Suspect]
     Indication: B-CELL SMALL LYMPHOCYTIC LYMPHOMA
  3. VALTREX [Concomitant]
  4. MULTI-VITAMINS [Concomitant]
  5. GLIMEPIRIDE [Concomitant]
  6. NORVASC [Concomitant]
  7. VIAGRA [Concomitant]

REACTIONS (4)
  - BLISTER [None]
  - BURNING SENSATION [None]
  - PAIN [None]
  - RASH [None]
